FAERS Safety Report 11944893 (Version 1)
Quarter: 2016Q1

REPORT INFORMATION
  Report Type: Spontaneous
  Country: US (occurrence: US)
  Receive Date: 20160125
  Receipt Date: 20160125
  Transmission Date: 20160526
  Serious: No
  Sender: FDA-Public Use
  Company Number: US-PFIZER INC-2015462891

PATIENT
  Age: 59 Year
  Sex: Male

DRUGS (23)
  1. TENORMIN [Concomitant]
     Active Substance: ATENOLOL
     Dosage: 25 MG, DAILY
     Route: 048
     Dates: start: 20150529
  2. UREA. [Concomitant]
     Active Substance: UREA
     Dosage: UNK, DAILY (40% CREA, APPLY TO FEET DAILY. DO NOT APPLY BETWEEN TOES)
     Dates: start: 20150420
  3. BACTROBAN [Concomitant]
     Active Substance: MUPIROCIN\MUPIROCIN CALCIUM
     Dosage: UNK, 3X/DAY (APPLY TO AFFECTED AREA TILL HEALED)
     Route: 061
     Dates: start: 20140628
  4. GLYCOLAX [Concomitant]
     Active Substance: POLYETHYLENE GLYCOL 3350
     Dosage: 17 G, DAILY (DISSOLVE IN 8 OUNCES OF LIQUID)
     Route: 048
     Dates: start: 20150313
  5. ERGOCALCIFEROL. [Concomitant]
     Active Substance: ERGOCALCIFEROL
     Dosage: 100000 IU, UNK (1 CAPSULE BY MOUTH EVERY 14 DAYS, 2 CAPSULE)
     Route: 048
     Dates: start: 20151204
  6. K-DUR [Concomitant]
     Active Substance: POTASSIUM CHLORIDE
     Dosage: 10 MEQ, DAILY
     Route: 048
     Dates: start: 20151204
  7. MONODOX [Concomitant]
     Active Substance: DOXYCYCLINE
     Dosage: 100 MG, 2X/DAY
     Route: 048
     Dates: start: 20151006
  8. COLACE [Concomitant]
     Active Substance: DOCUSATE SODIUM
     Dosage: 100 MG, 2X/DAY
     Route: 048
     Dates: start: 20150120
  9. CIALIS [Suspect]
     Active Substance: TADALAFIL
     Indication: ERECTILE DYSFUNCTION
     Dosage: 20 MG, AS NEEDED
     Route: 048
     Dates: start: 20150615
  10. CLEOCIN T [Concomitant]
     Active Substance: CLINDAMYCIN PHOSPHATE
     Dosage: UNK, 2X/DAY (1% EXTERNAL SOLUTION)
     Route: 061
     Dates: start: 20151008
  11. VOLTAREN [Concomitant]
     Active Substance: DICLOFENAC SODIUM
     Dosage: UNK, AS NEEDED (2 G ON THE SKIN 4 TIMES DAILY)
     Route: 061
     Dates: start: 20150508
  12. RETIN-A [Concomitant]
     Active Substance: TRETINOIN
     Dosage: UNK (0.05 % CREAM, AT BEDTIME)
     Route: 061
     Dates: start: 20141218
  13. HIBICLENS [Concomitant]
     Active Substance: CHLORHEXIDINE GLUCONATE
     Dosage: UNK, AS NEEDED (AFFECTED AREA IN THE SHOWER, LEAVE ON FOR 5 MINUTES AND RINSE. PERFORM 3X DAILY)
     Dates: start: 20140628
  14. MEVACOR [Concomitant]
     Active Substance: LOVASTATIN
     Dosage: 20 MG, DAILY (WITH DINNER)
     Route: 048
     Dates: start: 20151204
  15. PERCOCET [Concomitant]
     Active Substance: ACETAMINOPHEN\OXYCODONE HYDROCHLORIDE
     Indication: PAIN
     Dosage: UNK, AS NEEDED (7.5-325 MG PER TABLET, EVERY 8 HOURS)
     Route: 048
     Dates: start: 20151113
  16. ZYRTEC [Concomitant]
     Active Substance: CETIRIZINE HYDROCHLORIDE
     Dosage: 10 MG, DAILY
     Route: 048
     Dates: start: 20150527
  17. AMLACTIN [Concomitant]
     Active Substance: AMMONIUM LACTATE
     Dosage: UNK (ENTIRE SKIN ONCE OR TWICE DAILY)
     Dates: start: 20141128
  18. LASIX [Concomitant]
     Active Substance: FUROSEMIDE
     Indication: SWELLING
     Dosage: 20 MG, AS NEEDED (ONCE DAILY)
     Dates: start: 20150706
  19. CARDURA [Concomitant]
     Active Substance: DOXAZOSIN MESYLATE
     Dosage: 4 MG, UNK (AT BEDTIME)
     Route: 048
     Dates: start: 20150424, end: 20151215
  20. VIAGRA [Suspect]
     Active Substance: SILDENAFIL CITRATE
     Indication: ERECTILE DYSFUNCTION
     Dosage: 100 MG, AS NEEDED
     Route: 048
     Dates: start: 20151215
  21. PRILOSEC [Concomitant]
     Active Substance: OMEPRAZOLE MAGNESIUM
     Dosage: 20 MG, DAILY
     Route: 048
     Dates: start: 20151120
  22. FLONASE [Concomitant]
     Active Substance: FLUTICASONE PROPIONATE
     Dosage: UNK, DAILY (50 MCG/ACT, 2 SPRAYS IN EACH NOSTRIL DAILY)
     Route: 055
     Dates: start: 20151001
  23. TAZORAC [Concomitant]
     Active Substance: TAZAROTENE
     Dosage: UNK (0.05 % CREAM, EVERY EVENING. APPLY THIN LAYER TO FACE AND BACK)
     Route: 061
     Dates: start: 20150217

REACTIONS (2)
  - Headache [Unknown]
  - Drug prescribing error [Unknown]

NARRATIVE: CASE EVENT DATE: 20150615
